FAERS Safety Report 14481465 (Version 3)
Quarter: 2018Q1

REPORT INFORMATION
  Report Type: Spontaneous
  Country: US (occurrence: US)
  Receive Date: 20180202
  Receipt Date: 20180221
  Transmission Date: 20180509
  Serious: Yes (Death, Hospitalization)
  Sender: FDA-Public Use
  Company Number: US-ASTRAZENECA-2016SE76249

PATIENT
  Age: 77 Year
  Sex: Female
  Weight: 54.4 kg

DRUGS (22)
  1. PEMBROLIZUMAB. [Suspect]
     Active Substance: PEMBROLIZUMAB
     Indication: B-CELL LYMPHOMA
     Route: 042
     Dates: start: 20150921, end: 20151102
  2. ASPIRIN. [Concomitant]
     Active Substance: ASPIRIN
     Indication: CARDIOVASCULAR EVENT PROPHYLAXIS
     Route: 048
     Dates: start: 2012
  3. ANTI ITCH [Concomitant]
     Indication: RASH MACULO-PAPULAR
     Dosage: 1.0GTT AS REQUIRED
     Route: 061
     Dates: start: 20151102
  4. PREDNISONE. [Suspect]
     Active Substance: PREDNISONE
     Indication: AUTOIMMUNE HEPATITIS
     Route: 048
     Dates: start: 20151123, end: 20151207
  5. ACALABRUTINIB. [Suspect]
     Active Substance: ACALABRUTINIB
     Indication: B-CELL LYMPHOMA
     Route: 048
     Dates: start: 20151105, end: 20151123
  6. ACALABRUTINIB. [Suspect]
     Active Substance: ACALABRUTINIB
     Indication: B-CELL LYMPHOMA
     Route: 048
     Dates: start: 20151207
  7. TYLENOL [Concomitant]
     Active Substance: ACETAMINOPHEN
     Indication: PYREXIA
     Dosage: 2 TABLET, PRN2.0DF AS REQUIRED
     Route: 048
  8. NORCO [Concomitant]
     Active Substance: ACETAMINOPHEN\HYDROCODONE BITARTRATE
     Indication: MYALGIA
     Dosage: 5-325 MG, PRN
     Route: 048
     Dates: start: 20150924
  9. PEMBROLIZUMAB. [Suspect]
     Active Substance: PEMBROLIZUMAB
     Indication: B-CELL LYMPHOMA
     Route: 042
  10. MULTIVITAMIN [Concomitant]
     Active Substance: VITAMINS
     Indication: SUPPLEMENTATION THERAPY
     Route: 048
     Dates: start: 2000
  11. ZOFRAN [Concomitant]
     Active Substance: ONDANSETRON HYDROCHLORIDE
     Indication: NAUSEA
     Dosage: 8.0MG AS REQUIRED
     Route: 060
     Dates: start: 20150922
  12. NORCO [Concomitant]
     Active Substance: ACETAMINOPHEN\HYDROCODONE BITARTRATE
     Indication: ARTHRALGIA
     Dosage: 5-325 MG, PRN
     Route: 048
     Dates: start: 20150924
  13. RECLAST [Concomitant]
     Active Substance: ZOLEDRONIC ACID
     Indication: OSTEOPENIA
     Dosage: 5 MG
     Route: 042
     Dates: start: 201506
  14. TYLENOL PM [Concomitant]
     Active Substance: ACETAMINOPHEN\DIPHENHYDRAMINE
     Indication: INSOMNIA
     Dosage: 2.0DF AS REQUIRED
     Route: 048
     Dates: start: 20151214
  15. MULTIVITAMIN [Concomitant]
     Active Substance: VITAMINS
     Indication: PROPHYLAXIS
     Route: 048
     Dates: start: 2000
  16. IMODIUM [Concomitant]
     Active Substance: LOPERAMIDE HYDROCHLORIDE
     Indication: DIARRHOEA
     Dosage: 4.0MG AS REQUIRED
     Route: 048
     Dates: start: 20150922
  17. SODIUM CHLORIDE. [Concomitant]
     Active Substance: SODIUM CHLORIDE
     Indication: HYPONATRAEMIA
     Dosage: 1000.0ML ONCE/SINGLE ADMINISTRATION
     Route: 042
     Dates: start: 20151228, end: 20151228
  18. PEPCID [Concomitant]
     Active Substance: FAMOTIDINE
     Indication: GASTROOESOPHAGEAL REFLUX DISEASE
     Dosage: 20.0MG AS REQUIRED
     Route: 048
     Dates: start: 20150904
  19. TYLENOL [Concomitant]
     Active Substance: ACETAMINOPHEN
     Indication: CHILLS
     Dosage: 2 TABLET, PRN2.0DF AS REQUIRED
     Route: 048
  20. PREDNISONE. [Suspect]
     Active Substance: PREDNISONE
     Indication: ALANINE AMINOTRANSFERASE INCREASED
     Route: 048
     Dates: start: 20151123, end: 20151207
  21. ACALABRUTINIB. [Suspect]
     Active Substance: ACALABRUTINIB
     Indication: B-CELL LYMPHOMA
     Route: 048
     Dates: start: 20150921, end: 20151102
  22. MIRALAX [Concomitant]
     Active Substance: POLYETHYLENE GLYCOL 3350
     Indication: CONSTIPATION
     Route: 048
     Dates: start: 20150928

REACTIONS (1)
  - Pneumocystis jirovecii pneumonia [Fatal]

NARRATIVE: CASE EVENT DATE: 20151230
